FAERS Safety Report 6521627-7 (Version None)
Quarter: 2009Q4

REPORT INFORMATION
  Report Type: 
  Country: None (occurrence: None)
  Receive Date: 20091230
  Receipt Date: 20091217
  Transmission Date: 20100525
  Serious: Yes (Other)
  Sender: FDA-Public Use
  Company Number: PHHY2009CA54630

PATIENT
  Sex: Female

DRUGS (6)
  1. SANDOSTATIN LAR [Suspect]
     Indication: ACROMEGALY
     Dosage: 20 MG EVERY 4 WEEKS
     Route: 030
     Dates: start: 20091125
  2. LEVOTHYROXINE SODIUM [Concomitant]
  3. RAMIPRIL [Concomitant]
  4. FAMOTIDINE [Concomitant]
  5. ASPIRIN [Concomitant]
  6. INSULIN [Concomitant]

REACTIONS (13)
  - ABDOMINAL PAIN [None]
  - BREAST DISCHARGE [None]
  - BREAST ENGORGEMENT [None]
  - BREAST PAIN [None]
  - BREAST SWELLING [None]
  - ERYTHEMA [None]
  - GAIT DISTURBANCE [None]
  - HOT FLUSH [None]
  - MASTITIS [None]
  - NAUSEA [None]
  - NIPPLE DISORDER [None]
  - PAIN [None]
  - RETCHING [None]
